FAERS Safety Report 7875286-1 (Version None)
Quarter: 2011Q4

REPORT INFORMATION
  Report Type: 
  Country: None (occurrence: None)
  Receive Date: 20111031
  Receipt Date: 20111018
  Transmission Date: 20120403
  Serious: Yes (Other)
  Sender: FDA-Public Use
  Company Number: JP-NAPPMUNDI-MAG-2011-0001747

PATIENT
  Age: 81 Year
  Sex: Female

DRUGS (7)
  1. OXYCODONE HCL [Suspect]
     Dosage: 40 MG, DAILY
     Route: 048
     Dates: start: 20110806
  2. OXYCODONE HCL [Suspect]
     Indication: CANCER PAIN
     Dosage: 10 MG, DAILY
     Route: 048
     Dates: start: 20110811, end: 20110819
  3. DEXAMETHASONE SODIUM PHOSPHATE [Concomitant]
     Indication: CANCER PAIN
     Dosage: UNK
     Dates: start: 20110806, end: 20110819
  4. GASTER                             /00706001/ [Concomitant]
     Indication: PROPHYLAXIS
     Dosage: UNK
     Dates: start: 20110806, end: 20110819
  5. OXYCODONE HCL [Suspect]
     Dosage: 50 MG, DAILY
     Route: 048
     Dates: start: 20110811
  6. OXYCODONE HCL [Suspect]
     Dosage: 5 MG, DAILY
     Route: 048
     Dates: start: 20110806
  7. OXYCODONE HCL [Suspect]
     Indication: CANCER PAIN
     Dosage: 70 MG, DAILY
     Route: 048
     Dates: start: 20110815, end: 20110819

REACTIONS (1)
  - DELIRIUM [None]
